FAERS Safety Report 4402851-6 (Version None)
Quarter: 2004Q3

REPORT INFORMATION
  Report Type: 
  Country: None (occurrence: None)
  Receive Date: 20040719
  Receipt Date: 20040713
  Transmission Date: 20050211
  Serious: Yes (Death, Other)
  Sender: FDA-Public Use
  Company Number: HQWYE128415JUL04

PATIENT
  Age: 61 Year
  Sex: Female

DRUGS (3)
  1. PREMPRO [Suspect]
     Indication: HORMONE REPLACEMENT THERAPY
     Dosage: ORAL
     Route: 048
     Dates: start: 19970101, end: 20020322
  2. PREMARIN [Suspect]
     Dosage: ORAL
     Route: 048
     Dates: start: 19970101, end: 20020322
  3. PROVERA [Suspect]
     Indication: HORMONE REPLACEMENT THERAPY
     Dosage: ORAL
     Route: 048
     Dates: start: 19970101, end: 20020322

REACTIONS (1)
  - CEREBELLAR HAEMORRHAGE [None]
